FAERS Safety Report 9377466 (Version 1)
Quarter: 2013Q3

REPORT INFORMATION
  Report Type: Spontaneous
  Country: US (occurrence: US)
  Receive Date: 20130701
  Receipt Date: 20130701
  Transmission Date: 20140515
  Serious: No
  Sender: FDA-Public Use
  Company Number: US-ABBOTT-13P-163-1061145-00

PATIENT
  Sex: 0

DRUGS (4)
  1. NORVIR [Suspect]
     Indication: HIV INFECTION
  2. PREZISTA [Concomitant]
     Indication: HIV INFECTION
  3. TRUVADA [Concomitant]
     Indication: HIV INFECTION
  4. LOMOTIL [Concomitant]
     Indication: HIV INFECTION

REACTIONS (2)
  - Suicidal ideation [Not Recovered/Not Resolved]
  - Emotional disorder [Not Recovered/Not Resolved]
